FAERS Safety Report 16372634 (Version 1)
Quarter: 2019Q2

REPORT INFORMATION
  Report Type: Spontaneous
  Country: AU (occurrence: AU)
  Receive Date: 20190530
  Receipt Date: 20190530
  Transmission Date: 20190711
  Serious: Yes (Hospitalization)
  Sender: FDA-Public Use
  Company Number: AU-INDIVIOR LIMITED-INDV-119757-2019

PATIENT
  Sex: Male
  Weight: 50 kg

DRUGS (1)
  1. SUBOXONE [Suspect]
     Active Substance: BUPRENORPHINE HYDROCHLORIDE\NALOXONE HYDROCHLORIDE
     Indication: PRODUCT USED FOR UNKNOWN INDICATION
     Dosage: 8MG, TWO FILMS DAILY
     Route: 065

REACTIONS (3)
  - Product dispensing error [Unknown]
  - Pneumonia aspiration [Unknown]
  - Vomiting [Unknown]
